FAERS Safety Report 18171421 (Version 2)
Quarter: 2024Q3

REPORT INFORMATION
  Report Type: Spontaneous
  Country: IT (occurrence: IT)
  Receive Date: 20200819
  Receipt Date: 20240820
  Transmission Date: 20241016
  Serious: Yes (Hospitalization, Other)
  Sender: BAXTER
  Company Number: IT-EMA-DD-20200805-SAHARAN_H-104818

PATIENT
  Age: 32 Year
  Sex: Female

DRUGS (6)
  1. CYCLOPHOSPHAMIDE [Suspect]
     Active Substance: CYCLOPHOSPHAMIDE
     Indication: Bone marrow conditioning regimen
     Dosage: PRN
     Route: 065
  2. DASATINIB [Suspect]
     Active Substance: DASATINIB
     Indication: Acute lymphocytic leukaemia
     Dosage: PRN
     Route: 065
     Dates: start: 201702
  3. DASATINIB [Suspect]
     Active Substance: DASATINIB
     Dosage: 140 MILLIGRAM,ONCE
     Route: 065
  4. CYCLOSPORINE [Suspect]
     Active Substance: CYCLOSPORINE
     Indication: Prophylaxis against graft versus host disease
     Dosage: PRN
     Route: 065
  5. BUSULFAN [Suspect]
     Active Substance: BUSULFAN
     Indication: Bone marrow conditioning regimen
     Dosage: PRN
     Route: 065
  6. METHOTREXATE [Suspect]
     Active Substance: METHOTREXATE
     Indication: Prophylaxis against graft versus host disease
     Dosage: PRN
     Route: 065

REACTIONS (4)
  - Drug resistance [Unknown]
  - Pyrexia [Unknown]
  - Mucosal inflammation [Unknown]
  - Diarrhoea [Unknown]
